FAERS Safety Report 18168919 (Version 3)
Quarter: 2021Q2

REPORT INFORMATION
  Report Type: Spontaneous
  Country: US (occurrence: US)
  Receive Date: 20200819
  Receipt Date: 20210420
  Transmission Date: 20210717
  Serious: No
  Sender: FDA-Public Use
  Company Number: US-PFIZER INC-2020320662

PATIENT
  Age: 58 Year
  Sex: Female
  Weight: 90.72 kg

DRUGS (2)
  1. PHENELZINE SULFATE. [Suspect]
     Active Substance: PHENELZINE SULFATE
     Indication: DEPRESSION
  2. PHENELZINE SULFATE. [Suspect]
     Active Substance: PHENELZINE SULFATE
     Indication: AGORAPHOBIA
     Dosage: 60 MG, DAILY [15MG TABLET, 1 TABLET 4 TIMES DAILY BY MOUTH]
     Route: 048

REACTIONS (2)
  - Drug ineffective [Unknown]
  - Dyspnoea [Unknown]
